FAERS Safety Report 9459073 (Version 2)
Quarter: 2013Q4

REPORT INFORMATION
  Report Type: Spontaneous
  Country: US (occurrence: US)
  Receive Date: 20130814
  Receipt Date: 20131121
  Transmission Date: 20140711
  Serious: Yes (Hospitalization, Other)
  Sender: FDA-Public Use
  Company Number: US-TEVA-425905USA

PATIENT
  Sex: Female

DRUGS (1)
  1. TRI-SPRINTEC [Suspect]

REACTIONS (6)
  - Pancreatitis [Unknown]
  - Cholecystitis [Unknown]
  - Bile duct stenosis [Recovered/Resolved]
  - Haemangioma of liver [Unknown]
  - Pleural effusion [Unknown]
  - Atelectasis [Unknown]
